FAERS Safety Report 15881284 (Version 5)
Quarter: 2021Q4

REPORT INFORMATION
  Report Type: Spontaneous
  Country: PT (occurrence: PT)
  Receive Date: 20190128
  Receipt Date: 20211025
  Transmission Date: 20220303
  Serious: Yes (Hospitalization)
  Sender: FDA-Public Use
  Company Number: PT-CINFA-2018-07-5937

PATIENT
  Age: 13 Year
  Sex: Female

DRUGS (6)
  1. IBUPROFEN [Suspect]
     Active Substance: IBUPROFEN
     Indication: Pyrexia
     Dosage: UNK
     Route: 065
  2. IBUPROFEN [Suspect]
     Active Substance: IBUPROFEN
     Indication: Myalgia
     Dosage: UNK
  3. IBUPROFEN [Suspect]
     Active Substance: IBUPROFEN
     Indication: Cough
  4. IBUPROFEN [Suspect]
     Active Substance: IBUPROFEN
     Indication: Rhinorrhoea
  5. IBUPROFEN [Suspect]
     Active Substance: IBUPROFEN
     Indication: Headache
  6. IBUPROFEN [Suspect]
     Active Substance: IBUPROFEN
     Indication: Tonsillitis

REACTIONS (15)
  - Vulval ulceration [Recovered/Resolved]
  - Genital odour [Recovered/Resolved]
  - Mobility decreased [Unknown]
  - Oedema genital [Recovered/Resolved]
  - Vulvovaginal injury [Recovered/Resolved]
  - Condition aggravated [Unknown]
  - Genital haemorrhage [Recovered/Resolved]
  - Genital pain [Unknown]
  - Lip erythema [Recovered/Resolved]
  - Genital tract inflammation [Recovered/Resolved]
  - Urinary retention [Recovered/Resolved]
  - Vulval disorder [Recovered/Resolved]
  - Dysuria [Unknown]
  - Lip oedema [Recovered/Resolved]
  - Genital ulceration [Recovered/Resolved]
